FAERS Safety Report 19707667 (Version 1)
Quarter: 2021Q3

REPORT INFORMATION
  Report Type: Spontaneous
  Country: US (occurrence: US)
  Receive Date: 20210817
  Receipt Date: 20210817
  Transmission Date: 20211014
  Serious: Yes (Disabling, Other)
  Sender: FDA-Public Use
  Company Number: None

PATIENT
  Age: 88 Year
  Sex: Female
  Weight: 60.75 kg

DRUGS (1)
  1. MEMANTINE. [Suspect]
     Active Substance: MEMANTINE
     Indication: DEMENTIA
     Dosage: ?          QUANTITY:1 TABLET(S);?
     Route: 048
     Dates: start: 20210601, end: 20210814

REACTIONS (14)
  - Dizziness [None]
  - Diarrhoea [None]
  - Dysstasia [None]
  - Gait disturbance [None]
  - Anxiety [None]
  - Nausea [None]
  - Impaired quality of life [None]
  - Aggression [None]
  - Asthenia [None]
  - Loss of personal independence in daily activities [None]
  - Agitation [None]
  - Abdominal discomfort [None]
  - Confusional state [None]
  - Suicidal ideation [None]

NARRATIVE: CASE EVENT DATE: 20210813
